FAERS Safety Report 4902540-5 (Version None)
Quarter: 2006Q1

REPORT INFORMATION
  Report Type: 
  Country: None (occurrence: None)
  Receive Date: 20060202
  Receipt Date: 20060118
  Transmission Date: 20060701
  Serious: Yes (Hospitalization)
  Sender: FDA-Public Use
  Company Number: 2006-DE-00289GD

PATIENT
  Age: 47 Year
  Sex: Female

DRUGS (3)
  1. LITHIUM CARBONATE [Suspect]
     Indication: MAJOR DEPRESSION
     Dosage: 750 MG
  2. CITALOPRAM (CITALOPRAM) [Suspect]
     Indication: MAJOR DEPRESSION
     Dosage: 40 MG
  3. CLOMIPRAMINE HCL [Suspect]
     Indication: MAJOR DEPRESSION
     Dosage: 150 MG

REACTIONS (1)
  - THERAPY NON-RESPONDER [None]
